FAERS Safety Report 5258699-6 (Version None)
Quarter: 2007Q1

REPORT INFORMATION
  Report Type: 
  Country: None (occurrence: None)
  Receive Date: 20070308
  Receipt Date: 20070225
  Transmission Date: 20070707
  Serious: Yes (Other)
  Sender: FDA-Public Use
  Company Number: PHBS2007BR03806

PATIENT
  Age: 60 Year
  Sex: Female

DRUGS (2)
  1. ACTONEL [Concomitant]
  2. DIOVAN [Suspect]

REACTIONS (1)
  - OSTEITIS DEFORMANS [None]
